FAERS Safety Report 5844734-0 (Version None)
Quarter: 2008Q3

REPORT INFORMATION
  Report Type: 
  Country: None (occurrence: None)
  Receive Date: 20080812
  Receipt Date: 20080729
  Transmission Date: 20090109
  Serious: Yes (Hospitalization, Disabling)
  Sender: FDA-Public Use
  Company Number: 2008001797

PATIENT
  Age: 67 Year
  Sex: Male

DRUGS (3)
  1. ERLOTINIB (ERLOTINIB) [Suspect]
     Indication: NON-SMALL CELL LUNG CANCER
     Dosage: 150 MG QD ORAL
     Route: 048
     Dates: start: 20080513, end: 20080619
  2. METOCLOPRAMIDE [Concomitant]
  3. OMEPRAZOLE [Concomitant]

REACTIONS (7)
  - BRADYKINESIA [None]
  - DEPRESSED LEVEL OF CONSCIOUSNESS [None]
  - HEADACHE [None]
  - NAUSEA [None]
  - NEUROTOXICITY [None]
  - PERIPHERAL SENSORY NEUROPATHY [None]
  - VOMITING [None]
